FAERS Safety Report 5999801-8 (Version None)
Quarter: 2008Q4

REPORT INFORMATION
  Report Type: 
  Country: None (occurrence: None)
  Receive Date: 20081211
  Receipt Date: 20080821
  Transmission Date: 20090506
  Serious: Yes (Other)
  Sender: FDA-Public Use
  Company Number: WWISSUE-209

PATIENT
  Age: 35 Year
  Sex: Male
  Weight: 83.9154 kg

DRUGS (2)
  1. PREDNISONE TAB [Suspect]
     Indication: ACUTE SINUSITIS
     Dosage: TIERED QD X 14DAYS/ORAL
     Route: 048
     Dates: start: 20080514, end: 20080528
  2. AVELOX [Concomitant]

REACTIONS (1)
  - TENDON RUPTURE [None]
